FAERS Safety Report 15963023 (Version 2)
Quarter: 2019Q1

REPORT INFORMATION
  Report Type: Report from Study
  Country: None (occurrence: BG)
  Receive Date: 20190214
  Receipt Date: 20190218
  Transmission Date: 20190417
  Serious: Yes (Death, Hospitalization)
  Sender: FDA-Public Use
  Company Number: BG-ABBVIE-19S-022-2663594-00

PATIENT
  Age: 76 Year
  Sex: Male

DRUGS (1)
  1. DUODOPA [Suspect]
     Active Substance: CARBIDOPA\LEVODOPA
     Indication: PARKINSON^S DISEASE
     Dosage: MD- 9 ML??CR- 2.7 ML/H??EX- 1 ML
     Route: 050
     Dates: start: 20180529

REACTIONS (4)
  - Abdominal pain [Unknown]
  - Gallbladder rupture [Not Recovered/Not Resolved]
  - Cholecystitis acute [Not Recovered/Not Resolved]
  - Angiopathy [Fatal]

NARRATIVE: CASE EVENT DATE: 20190208
